FAERS Safety Report 8810767 (Version 1)
Quarter: 2012Q4

REPORT INFORMATION
  Report Type: Spontaneous
  Country: US (occurrence: None)
  Receive Date: 20120924
  Receipt Date: 20120924
  Transmission Date: 20130627
  Serious: Yes (Life-Threatening, Hospitalization, Disabling)
  Sender: FDA-Public Use
  Company Number: None

PATIENT
  Age: 37 Year
  Sex: Male
  Weight: 81.65 kg

DRUGS (1)
  1. AVELOX [Suspect]
     Indication: CELLULITIS
     Route: 048
     Dates: start: 20111201, end: 20111203

REACTIONS (9)
  - Insomnia [None]
  - Anxiety [None]
  - Depression [None]
  - Suicidal ideation [None]
  - Chondropathy [None]
  - Joint crepitation [None]
  - Muscle contractions involuntary [None]
  - Drug dependence [None]
  - Loss of employment [None]
